FAERS Safety Report 9401769 (Version 3)
Quarter: 2013Q4

REPORT INFORMATION
  Report Type: Report from Study
  Country: US (occurrence: US)
  Receive Date: 20130716
  Receipt Date: 20131214
  Transmission Date: 20140711
  Serious: Yes (Other)
  Sender: FDA-Public Use
  Company Number: US-ROCHE-1247036

PATIENT
  Age: 58 Year
  Sex: Female

DRUGS (11)
  1. RITUXAN [Suspect]
     Indication: PRODUCT USED FOR UNKNOWN INDICATION
     Route: 042
  2. RITUXAN [Suspect]
     Route: 042
  3. FAMOTIDINE [Concomitant]
     Route: 042
  4. DIPHENHYDRAMINE HCL [Concomitant]
     Route: 042
  5. DEXAMETHASONE SODIUM PHOSPHATE [Concomitant]
     Route: 042
  6. VINCRISTINE SULFATE [Concomitant]
     Route: 042
  7. FOSAPREPITANT DIMEGLUMINE [Concomitant]
     Route: 042
  8. PALONOSETRON HYDROCHLORIDE [Concomitant]
     Route: 042
  9. CYCLOPHOSPHAMIDE [Concomitant]
     Route: 042
  10. DOXORUBICIN HCL [Concomitant]
     Route: 042
  11. HYDRALAZINE [Concomitant]
     Route: 042

REACTIONS (8)
  - Transient ischaemic attack [Unknown]
  - Bone cancer [Unknown]
  - Bone cancer [Unknown]
  - B-cell lymphoma [Unknown]
  - Essential hypertension [Unknown]
  - Irritable bowel syndrome [Unknown]
  - Back injury [Unknown]
  - Gastrooesophageal reflux disease [Unknown]
